FAERS Safety Report 17219193 (Version 1)
Quarter: 2019Q4

REPORT INFORMATION
  Report Type: Spontaneous
  Country: US (occurrence: US)
  Receive Date: 20191231
  Receipt Date: 20191231
  Transmission Date: 20200122
  Serious: Yes (Other)
  Sender: FDA-Public Use
  Company Number: NVSC2019US080246

PATIENT
  Age: 46 Year
  Sex: Male

DRUGS (5)
  1. PREDNISONE. [Suspect]
     Active Substance: PREDNISONE
     Indication: PEMPHIGUS
     Dosage: 60 MG, QD (1 MG/KG/DAY)
     Route: 048
  2. TRIAMCINOLONE [Suspect]
     Active Substance: TRIAMCINOLONE
     Indication: PEMPHIGUS
     Dosage: UNK UNK
     Route: 061
  3. PREDNISONE. [Suspect]
     Active Substance: PREDNISONE
     Dosage: 80 MG, QD
     Route: 048
  4. MUPIROCIN. [Suspect]
     Active Substance: MUPIROCIN
     Indication: PEMPHIGUS
     Dosage: UNK UNK, BID
     Route: 065
  5. PREDNISONE. [Suspect]
     Active Substance: PREDNISONE
     Dosage: 60 MG, QD
     Route: 048

REACTIONS (3)
  - Hallucination, auditory [Recovering/Resolving]
  - Pemphigus [Recovering/Resolving]
  - Psychotic disorder [Recovering/Resolving]
